FAERS Safety Report 5320907-0 (Version None)
Quarter: 2007Q2

REPORT INFORMATION
  Report Type: 
  Country: None (occurrence: None)
  Receive Date: 20070504
  Receipt Date: 20070424
  Transmission Date: 20071010
  Serious: Yes (Other)
  Sender: FDA-Public Use
  Company Number: 2007-01030

PATIENT
  Age: 56 Year
  Sex: Male

DRUGS (2)
  1. VELCADE [Suspect]
     Indication: MULTIPLE MYELOMA
     Dosage: 2.20 MG
     Dates: start: 20070319, end: 20070322
  2. METHYLPREDNISOLONE [Concomitant]

REACTIONS (2)
  - PNEUMONIA FUNGAL [None]
  - PULMONARY ALVEOLAR HAEMORRHAGE [None]
